FAERS Safety Report 14243160 (Version 1)
Quarter: 2017Q4

REPORT INFORMATION
  Report Type: Report from Study
  Country: US (occurrence: US)
  Receive Date: 20171201
  Receipt Date: 20171201
  Transmission Date: 20180321
  Serious: Yes (Death, Hospitalization)
  Sender: FDA-Public Use
  Company Number: US-BAYER-2017-068864

PATIENT
  Age: 81 Year
  Sex: Female

DRUGS (2)
  1. ADEMPAS [Suspect]
     Active Substance: RIOCIGUAT
     Indication: PULMONARY ARTERIAL HYPERTENSION
     Dosage: UNK
  2. ADEMPAS [Suspect]
     Active Substance: RIOCIGUAT
     Indication: PULMONARY ARTERIAL HYPERTENSION
     Dosage: 2.5 MG, TID
     Route: 048
     Dates: start: 20150409

REACTIONS (10)
  - Death [Fatal]
  - Iron deficiency anaemia [None]
  - Dyspnoea [Unknown]
  - Acute kidney injury [None]
  - Oedema peripheral [None]
  - General physical health deterioration [None]
  - Asthenia [None]
  - Pneumonia [Unknown]
  - Influenza [Unknown]
  - Fall [None]

NARRATIVE: CASE EVENT DATE: 20170325
